FAERS Safety Report 7414767-1 (Version None)
Quarter: 2011Q2

REPORT INFORMATION
  Report Type: 
  Country: None (occurrence: None)
  Receive Date: 20110414
  Receipt Date: 20110404
  Transmission Date: 20111010
  Serious: Yes (Other)
  Sender: FDA-Public Use
  Company Number: SE-SANOFI-AVENTIS-2011SA020429

PATIENT
  Age: 61 Year
  Sex: Female

DRUGS (9)
  1. SUMATRIPTAN [Concomitant]
  2. WARAN [Concomitant]
  3. BRICANYL [Concomitant]
  4. AMLODIPINE [Concomitant]
  5. SERETIDE DISKUS FORTE [Concomitant]
  6. SELOKEN [Concomitant]
  7. MULTAQ [Suspect]
     Route: 048
     Dates: start: 20101212, end: 20110116
  8. SIMVASTATIN [Concomitant]
  9. ALVEDON [Concomitant]

REACTIONS (3)
  - TREMOR [None]
  - NIGHTMARE [None]
  - HALLUCINATION, VISUAL [None]
